FAERS Safety Report 26020805 (Version 1)
Quarter: 2025Q4

REPORT INFORMATION
  Report Type: Spontaneous
  Country: US (occurrence: None)
  Receive Date: 20251108
  Receipt Date: 20251108
  Transmission Date: 20260117
  Serious: Yes (Hospitalization)
  Sender: FDA-CTU
  Company Number: None

PATIENT
  Age: 19 Year
  Sex: Female
  Weight: 106.3 kg

DRUGS (4)
  1. CALASPARGASE PEGOL-MKNL [Suspect]
     Active Substance: CALASPARGASE PEGOL-MKNL
     Dosage: OTHER QUANTITY : 3750 UNIT;
     Dates: end: 20251015
  2. DEXAMETHASONE [Suspect]
     Active Substance: DEXAMETHASONE
     Dates: end: 20251029
  3. DOXORUBICIN HYDROCHLORIDE [Suspect]
     Active Substance: DOXORUBICIN HYDROCHLORIDE
     Dates: end: 20251015
  4. VINCRISTINE SULFATE [Suspect]
     Active Substance: VINCRISTINE SULFATE
     Dosage: OTHER QUANTITY : 4 MG DAY 22 DOSE HELD;
     Dates: end: 20251028

REACTIONS (7)
  - Haematological infection [None]
  - Staphylococcus test positive [None]
  - Corynebacterium test positive [None]
  - Septic shock [None]
  - Febrile neutropenia [None]
  - Acute respiratory failure [None]
  - Acute respiratory distress syndrome [None]

NARRATIVE: CASE EVENT DATE: 20251105
